FAERS Safety Report 26085862 (Version 2)
Quarter: 2025Q4

REPORT INFORMATION
  Report Type: Report from Study
  Country: US (occurrence: US)
  Receive Date: 20251125
  Receipt Date: 20251211
  Transmission Date: 20260117
  Serious: No
  Sender: DR REDDYS
  Company Number: US-DRL-USA-USA/2025/11/016930

PATIENT
  Age: 33 Year
  Sex: Female
  Weight: 47.4 kg

DRUGS (2)
  1. ZENATANE [Suspect]
     Active Substance: ISOTRETINOIN
     Indication: Acne
     Route: 065
  2. ZENATANE [Suspect]
     Active Substance: ISOTRETINOIN
     Dosage: NDC: 55111- 0137-81
     Route: 065

REACTIONS (1)
  - Erythema [Recovered/Resolved]
